FAERS Safety Report 8848693 (Version 3)
Quarter: 2012Q4

REPORT INFORMATION
  Report Type: 
  Country: CA (occurrence: CA)
  Receive Date: 20121019
  Receipt Date: 20121217
  Transmission Date: 20130627
  Serious: Yes (Other)
  Sender: FDA-Public Use
  Company Number: CA-AMGEN-CANSP2012066175

PATIENT
  Age: 75 Year
  Sex: Male
  Weight: 64.8 kg

DRUGS (12)
  1. VECTIBIX [Suspect]
     Indication: RECTAL CANCER STAGE IV
     Dosage: 398 mg, q2wk
     Route: 042
     Dates: start: 20120709
  2. CHEMOTHERAPEUTICS [Concomitant]
     Dosage: UNK
  3. GLUCOPHAGE [Concomitant]
     Dosage: 850 mg, bid
     Route: 048
  4. DIAMICRON [Concomitant]
     Dosage: UNK
  5. ATIVAN [Concomitant]
     Dosage: UNK UNK, prn
  6. VOLTAREN                           /00372301/ [Concomitant]
     Dosage: UNK UNK, prn
  7. NEXIUM                             /01479302/ [Concomitant]
     Dosage: 40 mg, UNK
     Route: 048
  8. MOTILIUM                           /00498201/ [Concomitant]
     Dosage: 10 mg, qid
     Route: 048
  9. TYLENOL /00020001/ [Concomitant]
     Dosage: UNK UNK, prn
  10. LEUCOVORIN /00566701/ [Concomitant]
     Dosage: UNK
  11. 5 FU [Concomitant]
     Dosage: UNK
  12. IRINOTECAN [Concomitant]
     Dosage: UNK

REACTIONS (9)
  - Plicated tongue [Not Recovered/Not Resolved]
  - Stomatitis [Not Recovered/Not Resolved]
  - Aphagia [Not Recovered/Not Resolved]
  - Dysphagia [Not Recovered/Not Resolved]
  - Mouth ulceration [Recovered/Resolved]
  - Glossitis [Recovered/Resolved]
  - Skin lesion [Not Recovered/Not Resolved]
  - Acne [Recovered/Resolved]
  - Hypomagnesaemia [Unknown]
